FAERS Safety Report 5801723-X (Version None)
Quarter: 2008Q3

REPORT INFORMATION
  Report Type: 
  Country: None (occurrence: None)
  Receive Date: 20080707
  Receipt Date: 20080624
  Transmission Date: 20090109
  Serious: Yes (Hospitalization, Other)
  Sender: FDA-Public Use
  Company Number: B0527604A

PATIENT
  Age: 81 Year
  Sex: Female

DRUGS (3)
  1. DIGOXIN [Suspect]
     Indication: HYPERTENSION
     Route: 065
  2. NICARDIPINE HYDROCHLORIDE [Suspect]
     Indication: HYPERTENSION
     Route: 065
  3. PROPRANOLOL HYDROCHLORIDE [Suspect]
     Indication: HYPERTENSION
     Route: 065

REACTIONS (8)
  - ABDOMINAL PAIN LOWER [None]
  - ANAL HAEMORRHAGE [None]
  - C-REACTIVE PROTEIN INCREASED [None]
  - COLITIS ISCHAEMIC [None]
  - HAEMOGLOBIN DECREASED [None]
  - OCCULT BLOOD POSITIVE [None]
  - PETECHIAE [None]
  - WHITE BLOOD CELL COUNT INCREASED [None]
